FAERS Safety Report 26066701 (Version 2)
Quarter: 2025Q4

REPORT INFORMATION
  Report Type: Spontaneous
  Country: EU (occurrence: EU)
  Receive Date: 20251119
  Receipt Date: 20251127
  Transmission Date: 20260119
  Serious: Yes (Hospitalization)
  Sender: MERCK SHARP & DOHME LLC
  Company Number: None

PATIENT
  Age: 79 Year
  Sex: Female
  Weight: 72 kg

DRUGS (2)
  1. FIDAXOMICIN [Suspect]
     Active Substance: FIDAXOMICIN
     Indication: Clostridium difficile colitis
     Dosage: STRENGTH: 200MG
     Route: 048
     Dates: start: 20250929, end: 20251006
  2. CEFTRIAXONE [Concomitant]
     Active Substance: CEFTRIAXONE
     Indication: Escherichia pyelonephritis
     Route: 042
     Dates: start: 20250926, end: 20251002

REACTIONS (2)
  - Tinnitus [Recovered/Resolved]
  - Deafness [Recovered/Resolved]

NARRATIVE: CASE EVENT DATE: 20251001
